FAERS Safety Report 23544471 (Version 1)
Quarter: 2024Q1

REPORT INFORMATION
  Report Type: Spontaneous
  Country: US (occurrence: US)
  Receive Date: 20240220
  Receipt Date: 20240220
  Transmission Date: 20240409
  Serious: Yes (Hospitalization)
  Sender: FDA-Public Use
  Company Number: US-009507513-2402USA004778

PATIENT
  Age: 67 Year
  Sex: Male

DRUGS (3)
  1. KEYTRUDA [Suspect]
     Active Substance: PEMBROLIZUMAB
     Indication: Renal cancer
     Dosage: UNK UNK, Q3W
     Route: 042
     Dates: start: 20231121, end: 20240103
  2. PREDNISONE [Concomitant]
     Active Substance: PREDNISONE
  3. INLYTA [Concomitant]
     Active Substance: AXITINIB

REACTIONS (2)
  - Muscular weakness [Not Recovered/Not Resolved]
  - Paraesthesia [Not Recovered/Not Resolved]

NARRATIVE: CASE EVENT DATE: 20240103
